FAERS Safety Report 24031564 (Version 2)
Quarter: 2024Q3

REPORT INFORMATION
  Report Type: Report from Study
  Country: US (occurrence: US)
  Receive Date: 20240629
  Receipt Date: 20240710
  Transmission Date: 20241017
  Serious: Yes (Other)
  Sender: ABBVIE
  Company Number: US-ABBVIE-5537212

PATIENT
  Age: 61 Year
  Sex: Male

DRUGS (2)
  1. SKYRIZI [Suspect]
     Active Substance: RISANKIZUMAB-RZAA
     Indication: Psoriasis
     Route: 058
     Dates: start: 20231206, end: 20240327
  2. SKYRIZI [Suspect]
     Active Substance: RISANKIZUMAB-RZAA
     Dosage: FIRST ADMIN DATE-2024
     Route: 058
     Dates: end: 20240615

REACTIONS (6)
  - Multiple sclerosis [Unknown]
  - Cerebrovascular accident [Recovering/Resolving]
  - Headache [Not Recovered/Not Resolved]
  - Cerebrospinal fluid leakage [Recovering/Resolving]
  - Inflammation [Unknown]
  - Subdural haematoma [Unknown]

NARRATIVE: CASE EVENT DATE: 20231207
